FAERS Safety Report 7663560 (Version 4)
Quarter: 2013Q3

REPORT INFORMATION
  Report Type: Spontaneous
  Country: JP (occurrence: JP)
  Receive Date: 20101110
  Receipt Date: 20130917
  Transmission Date: 20140515
  Serious: Yes (Other)
  Sender: FDA-Public Use
  Company Number: PHHY2010JP73839

PATIENT
  Age: 57 Year
  Sex: Male

DRUGS (3)
  1. TASIGNA [Suspect]
     Indication: CHRONIC MYELOID LEUKAEMIA
     Dosage: 400 MG, DAILY
     Route: 048
     Dates: start: 20100811
  2. TASIGNA [Suspect]
     Dosage: 800 MG, DAILY
     Route: 048
     Dates: start: 201009, end: 20101012
  3. TASIGNA [Suspect]
     Dosage: 800 MG DAILY
     Route: 048
     Dates: start: 201211, end: 201302

REACTIONS (6)
  - Hepatic cancer [Unknown]
  - Second primary malignancy [Unknown]
  - Prinzmetal angina [Recovering/Resolving]
  - Chest discomfort [Unknown]
  - Arteriospasm coronary [Recovering/Resolving]
  - Arteriosclerosis [Recovering/Resolving]
